FAERS Safety Report 7416826-6 (Version None)
Quarter: 2011Q2

REPORT INFORMATION
  Report Type: 
  Country: None (occurrence: None)
  Receive Date: 20110415
  Receipt Date: 20110404
  Transmission Date: 20111010
  Serious: Yes (Death, Other)
  Sender: FDA-Public Use
  Company Number: US-ELI_LILLY_AND_COMPANY-US201101000641

PATIENT
  Sex: Female
  Weight: 43.537 kg

DRUGS (9)
  1. FORTEO [Suspect]
     Indication: OSTEOPOROSIS
     Dosage: 20 UG, DAILY (1/D)
     Route: 058
     Dates: start: 20101118
  2. CALCIUM [Concomitant]
  3. THYROXINE [Concomitant]
  4. LOVAZA [Concomitant]
  5. MULTI-VITAMIN [Concomitant]
  6. ANAPRIL [Concomitant]
  7. ASPIRIN [Concomitant]
  8. FORTEO [Suspect]
     Dosage: 20 UG, DAILY (1/D)
     Route: 058
     Dates: end: 20110128
  9. METOPROLOL TARTRATE [Concomitant]

REACTIONS (5)
  - LUNG NEOPLASM MALIGNANT [None]
  - DEATH [None]
  - METASTASES TO BONE [None]
  - LABORATORY TEST ABNORMAL [None]
  - INFLUENZA [None]
